FAERS Safety Report 20437253 (Version 2)
Quarter: 2022Q1

REPORT INFORMATION
  Report Type: Spontaneous
  Country: US (occurrence: US)
  Receive Date: 20220207
  Receipt Date: 20220219
  Transmission Date: 20220424
  Serious: Yes (Death, Life-Threatening, Hospitalization, Other)
  Sender: FDA-Public Use
  Company Number: US-MACLEODS PHARMACEUTICALS US LTD-MAC2022034261

PATIENT

DRUGS (2)
  1. AMLODIPINE BESYLATE [Suspect]
     Active Substance: AMLODIPINE BESYLATE
     Indication: Hypertension
     Dosage: UNK
     Route: 048
  2. AMLODIPINE BESYLATE [Suspect]
     Active Substance: AMLODIPINE BESYLATE
     Dosage: 40 DOSAGE FORM, SINGLE, INTENTIONAL OVERDOSE WITH 40 TABLETS OF HER 10 MG AMLODIPINE PRESCRIPTION
     Route: 065

REACTIONS (24)
  - Multiple organ dysfunction syndrome [Fatal]
  - Toxicity to various agents [Fatal]
  - Mental status changes [Fatal]
  - Agitation [Fatal]
  - Acute kidney injury [Fatal]
  - Hyperkalaemia [Fatal]
  - Metabolic acidosis [Fatal]
  - Visceral congestion [Fatal]
  - Atrioventricular dissociation [Fatal]
  - Mitral valve incompetence [Fatal]
  - Leukocytosis [Fatal]
  - Hypotension [Fatal]
  - Vasoplegia syndrome [Fatal]
  - Transaminases increased [Fatal]
  - Suicide attempt [Unknown]
  - Atrial pressure increased [Not Recovered/Not Resolved]
  - Metabolic disorder [Not Recovered/Not Resolved]
  - Infection [Not Recovered/Not Resolved]
  - Pyrexia [Not Recovered/Not Resolved]
  - Nodal rhythm [Not Recovered/Not Resolved]
  - Psychotic disorder [Not Recovered/Not Resolved]
  - Urine output decreased [Unknown]
  - Bradycardia [Fatal]
  - Intentional overdose [Fatal]
